FAERS Safety Report 6275987-5 (Version None)
Quarter: 2009Q3

REPORT INFORMATION
  Report Type: 
  Country: None (occurrence: None)
  Receive Date: 20090720
  Receipt Date: 20090710
  Transmission Date: 20100115
  Serious: Yes (Hospitalization)
  Sender: FDA-Public Use
  Company Number: 20097078

PATIENT
  Sex: Male

DRUGS (1)
  1. LIORESAL [Suspect]
     Indication: MUSCLE SPASTICITY
     Dosage: MCG, DAILY, INTRATHECAL
     Route: 037

REACTIONS (8)
  - BODY TEMPERATURE INCREASED [None]
  - CONVULSION [None]
  - FORMICATION [None]
  - HYPOTENSION [None]
  - IRRITABILITY [None]
  - PARAESTHESIA [None]
  - PRURITUS [None]
  - WITHDRAWAL SYNDROME [None]
